FAERS Safety Report 13123462 (Version 3)
Quarter: 2017Q1

REPORT INFORMATION
  Report Type: Spontaneous
  Country: US (occurrence: US)
  Receive Date: 20170117
  Receipt Date: 20170321
  Transmission Date: 20170428
  Serious: Yes (Life-Threatening, Hospitalization, Other)
  Sender: FDA-Public Use
  Company Number: US-ELI_LILLY_AND_COMPANY-US201701001579

PATIENT
  Age: 76 Year
  Sex: Male
  Weight: 61.1 kg

DRUGS (10)
  1. VANCOMYCIN HYDROCHLORIDE. [Suspect]
     Active Substance: VANCOMYCIN HYDROCHLORIDE
     Indication: DIARRHOEA
     Dosage: 500 MG, QID
     Route: 048
     Dates: start: 20161026, end: 20161027
  2. VANCOMYCIN HYDROCHLORIDE. [Suspect]
     Active Substance: VANCOMYCIN HYDROCHLORIDE
     Indication: CLOSTRIDIUM DIFFICILE COLITIS
  3. VANCOMYCIN HYDROCHLORIDE. [Suspect]
     Active Substance: VANCOMYCIN HYDROCHLORIDE
     Indication: DIARRHOEA
     Dosage: 1000 MG, BID
     Route: 042
     Dates: start: 20161025, end: 20161031
  4. ZYPREXA [Suspect]
     Active Substance: OLANZAPINE
     Indication: CONFUSIONAL STATE
  5. VANCOMYCIN HYDROCHLORIDE. [Suspect]
     Active Substance: VANCOMYCIN HYDROCHLORIDE
     Indication: CLOSTRIDIUM DIFFICILE COLITIS
  6. XANAX [Concomitant]
     Active Substance: ALPRAZOLAM
  7. ZYPREXA [Suspect]
     Active Substance: OLANZAPINE
     Indication: AGITATION
  8. RISPERDAL [Concomitant]
     Active Substance: RISPERIDONE
  9. ZYPREXA [Suspect]
     Active Substance: OLANZAPINE
     Indication: DELIRIUM
     Dosage: UNK, UNKNOWN
     Route: 065
     Dates: start: 20161025
  10. HEPARIN [Concomitant]
     Active Substance: HEPARIN SODIUM
     Indication: PRODUCT USED FOR UNKNOWN INDICATION
     Dosage: UNK, UNKNOWN
     Route: 065

REACTIONS (10)
  - Dyspnoea [Recovered/Resolved]
  - Acute kidney injury [Recovered/Resolved]
  - Anxiety [Recovered/Resolved]
  - Haematuria [Unknown]
  - Ototoxicity [Unknown]
  - Hypersensitivity [Unknown]
  - Diarrhoea [Recovered/Resolved]
  - Encephalopathy [Recovered/Resolved]
  - Tinnitus [Unknown]
  - Dysphagia [Unknown]

NARRATIVE: CASE EVENT DATE: 2012
